FAERS Safety Report 18126298 (Version 2)
Quarter: 2020Q3

REPORT INFORMATION
  Report Type: Report from Study
  Country: None (occurrence: DO)
  Receive Date: 20200808
  Receipt Date: 20200908
  Transmission Date: 20201103
  Serious: Yes (Other)
  Sender: FDA-Public Use
  Company Number: DO-ABBVIE-20K-279-3517523-00

PATIENT
  Sex: Male
  Weight: 100 kg

DRUGS (2)
  1. HUMIRA [Suspect]
     Active Substance: ADALIMUMAB
     Indication: ANKYLOSING SPONDYLITIS
     Route: 058
     Dates: start: 20191115, end: 20200630
  2. METHOTREXATE [METHOTREXATE SODIUM] [Concomitant]
     Active Substance: METHOTREXATE SODIUM
     Indication: ANKYLOSING SPONDYLITIS
     Dates: end: 202007

REACTIONS (7)
  - Somnolence [Recovering/Resolving]
  - Respiratory distress [Recovering/Resolving]
  - Burning sensation [Recovering/Resolving]
  - COVID-19 [Recovered/Resolved]
  - Pneumonitis [Recovering/Resolving]
  - Blood cholesterol abnormal [Recovering/Resolving]
  - Ocular discomfort [Recovering/Resolving]

NARRATIVE: CASE EVENT DATE: 20000711
